FAERS Safety Report 16907517 (Version 2)
Quarter: 2019Q4

REPORT INFORMATION
  Report Type: Spontaneous
  Country: FR (occurrence: FR)
  Receive Date: 20191011
  Receipt Date: 20191217
  Transmission Date: 20200122
  Serious: Yes (Hospitalization)
  Sender: FDA-Public Use
  Company Number: FR-ACCORD-156886

PATIENT
  Age: 63 Year
  Sex: Female
  Weight: 66 kg

DRUGS (5)
  1. PARACETAMOL [Suspect]
     Active Substance: ACETAMINOPHEN
     Route: 048
     Dates: start: 20190215, end: 20190215
  2. SERTRALINE [Suspect]
     Active Substance: SERTRALINE HYDROCHLORIDE
     Route: 048
     Dates: start: 20190215, end: 20190215
  3. LAROXYL [Suspect]
     Active Substance: AMITRIPTYLINE HYDROCHLORIDE
     Dosage: STRENGTH-25 MG
     Route: 048
     Dates: start: 20190215, end: 20190215
  4. CODEINE [Suspect]
     Active Substance: CODEINE
     Route: 048
     Dates: start: 20190215, end: 20190215
  5. LEXOMIL ROCHE [Suspect]
     Active Substance: BROMAZEPAM
     Dosage: ROCHE TABLET BAGUTTE, QUADRISECABLE TABLET
     Route: 048
     Dates: start: 20190215, end: 20190215

REACTIONS (6)
  - Hepatocellular injury [Recovered/Resolved]
  - Confusional state [Recovered/Resolved]
  - Poisoning deliberate [Unknown]
  - Agitation [Recovered/Resolved]
  - Movement disorder [Recovered/Resolved]
  - Hallucination [Recovered/Resolved]

NARRATIVE: CASE EVENT DATE: 20190215
